FAERS Safety Report 8345077-6 (Version None)
Quarter: 2012Q1

REPORT INFORMATION
  Report Type: 
  Country: None (occurrence: None)
  Receive Date: 20120315
  Receipt Date: 20101227
  Transmission Date: 20120608
  Serious: No
  Sender: FDA-Public Use
  Company Number: PHHY2010US86550

PATIENT
  Age: 48 Year
  Sex: Male

DRUGS (13)
  1. GILENYA [Suspect]
     Dosage: 0.5 MG, PER DAY, ORAL
     Route: 048
  2. VITAMIN D [Concomitant]
  3. SAW PALMETTO (SERENOA REPENS) [Concomitant]
  4. MSM (METHYLSULFONYLMETHANE) [Concomitant]
  5. IBUPROFEN [Concomitant]
  6. MARIJUANA (CANNABIS, CANNABIS SATIVA) [Concomitant]
  7. ZINC (ZINC) [Concomitant]
  8. FISH OIL (FISH OIL) [Concomitant]
  9. AMBIEN [Concomitant]
  10. RELPAX [Concomitant]
  11. CIALIS [Concomitant]
  12. PROVIGIL [Concomitant]
  13. VITAMIN B12 [Concomitant]

REACTIONS (2)
  - FEELING ABNORMAL [None]
  - ANXIETY DISORDER [None]
